FAERS Safety Report 6752613-X (Version None)
Quarter: 2010Q2

REPORT INFORMATION
  Report Type: 
  Country: None (occurrence: None)
  Receive Date: 20100601
  Receipt Date: 20100601
  Transmission Date: 20101027
  Serious: Yes (Life-Threatening, Hospitalization, Disabling)
  Sender: FDA-Public Use
  Company Number: None

PATIENT
  Age: 44 Year
  Sex: Male
  Weight: 72.5755 kg

DRUGS (2)
  1. MULTIHANCE [Suspect]
     Indication: ARTERIOVENOUS MALFORMATION
     Dosage: 15 MG ONCE IV BOLUS
     Route: 040
     Dates: start: 20100527, end: 20100527
  2. MULTIHANCE [Suspect]
     Indication: SALIVARY GLAND NEOPLASM
     Dosage: 15 MG ONCE IV BOLUS
     Route: 040
     Dates: start: 20100527, end: 20100527

REACTIONS (3)
  - ANAPHYLACTIC SHOCK [None]
  - CONTRAST MEDIA REACTION [None]
  - NAUSEA [None]
